FAERS Safety Report 20776802 (Version 1)
Quarter: 2022Q2

REPORT INFORMATION
  Report Type: Spontaneous
  Country: AU (occurrence: AU)
  Receive Date: 20220502
  Receipt Date: 20220502
  Transmission Date: 20220721
  Serious: Yes (Disabling, Other)
  Sender: FDA-Public Use
  Company Number: AU-Fresenius Kabi-FK202205019

PATIENT
  Age: 29 Year
  Sex: Female

DRUGS (2)
  1. FENTANYL [Suspect]
     Active Substance: FENTANYL
     Indication: Anaesthesia
     Dosage: UNKNOWN
  2. BUPIVACAINE\EPINEPHRINE [Suspect]
     Active Substance: BUPIVACAINE\EPINEPHRINE
     Indication: Anaesthesia
     Dosage: UNKNOWN

REACTIONS (2)
  - Exposure during pregnancy [Recovered/Resolved]
  - Deafness neurosensory [Recovered/Resolved with Sequelae]
